FAERS Safety Report 9405209 (Version 1)
Quarter: 2013Q3

REPORT INFORMATION
  Report Type: Spontaneous
  Country: FR (occurrence: FR)
  Receive Date: 20130717
  Receipt Date: 20130717
  Transmission Date: 20140515
  Serious: Yes (Hospitalization)
  Sender: FDA-Public Use
  Company Number: FR-BAXTER-2013BAX026719

PATIENT
  Age: 1 Year
  Sex: Female
  Weight: 10.2 kg

DRUGS (1)
  1. SODIUM CHLORIDE [Suspect]
     Indication: DEHYDRATION
     Route: 042
     Dates: start: 20110628, end: 20110628

REACTIONS (3)
  - Infusion site extravasation [Recovered/Resolved]
  - Oedema peripheral [Recovered/Resolved]
  - Cyanosis [Unknown]
